FAERS Safety Report 21929904 (Version 2)
Quarter: 2023Q1

REPORT INFORMATION
  Report Type: Spontaneous
  Country: US (occurrence: US)
  Receive Date: 20230131
  Receipt Date: 20230221
  Transmission Date: 20230418
  Serious: No
  Sender: FDA-Public Use
  Company Number: US-BRISTOL-MYERS SQUIBB COMPANY-2023-013917

PATIENT
  Age: 78 Year
  Sex: Male
  Weight: 78.5 kg

DRUGS (1)
  1. LENALIDOMIDE [Suspect]
     Active Substance: LENALIDOMIDE
     Indication: Plasma cell myeloma
     Dosage: FREQ: DAYS 1-21 Q 28 DAYS
     Route: 048
     Dates: start: 20230123

REACTIONS (8)
  - Rash pruritic [Recovered/Resolved]
  - Taste disorder [Not Recovered/Not Resolved]
  - Constipation [Not Recovered/Not Resolved]
  - Rash erythematous [Recovered/Resolved]
  - Muscle spasms [Not Recovered/Not Resolved]
  - Myalgia [Not Recovered/Not Resolved]
  - Product dose omission in error [Unknown]
  - Circumstance or information capable of leading to medication error [Unknown]

NARRATIVE: CASE EVENT DATE: 20230125
